FAERS Safety Report 7258673-4 (Version None)
Quarter: 2011Q1

REPORT INFORMATION
  Report Type: 
  Country: None (occurrence: None)
  Receive Date: 20110129
  Receipt Date: 20100601
  Transmission Date: 20110831
  Serious: No
  Sender: FDA-Public Use
  Company Number: US-ABBOTT-10P-163-0647951-00

PATIENT
  Sex: Female
  Weight: 52.21 kg

DRUGS (3)
  1. HUMIRA [Suspect]
  2. PREDNISONE [Concomitant]
     Indication: CROHN'S DISEASE
     Dosage: 40 MG DAILY TAPERED DOWN TO  5 MG DAILY
     Dates: start: 20100101
  3. HUMIRA [Suspect]
     Indication: CROHN'S DISEASE
     Dates: start: 20090501, end: 20090801

REACTIONS (3)
  - PYREXIA [None]
  - DRUG INEFFECTIVE [None]
  - CROHN'S DISEASE [None]
